FAERS Safety Report 17412617 (Version 1)
Quarter: 2020Q1

REPORT INFORMATION
  Report Type: Spontaneous
  Country: US (occurrence: US)
  Receive Date: 20200129
  Receipt Date: 20200129
  Transmission Date: 20200409
  Serious: Yes (Hospitalization)
  Sender: FDA-Public Use
  Company Number: None

PATIENT
  Age: 88 Year
  Sex: Male
  Weight: 78.47 kg

DRUGS (2)
  1. QUETIAPINE (QUETIAPINE FUMARATE 25MG TAB) [Suspect]
     Active Substance: QUETIAPINE
     Indication: NIGHTMARE
     Route: 048
     Dates: start: 20190926, end: 20191027
  2. METOPROLOL. [Suspect]
     Active Substance: METOPROLOL
     Indication: HYPERTENSION
     Route: 048
     Dates: start: 20191008, end: 20191027

REACTIONS (8)
  - Asthenia [None]
  - Sedation [None]
  - Decreased appetite [None]
  - Dementia [None]
  - Fatigue [None]
  - Hypotension [None]
  - Fall [None]
  - Presyncope [None]

NARRATIVE: CASE EVENT DATE: 20191027
